FAERS Safety Report 4987782-5 (Version None)
Quarter: 2006Q2

REPORT INFORMATION
  Report Type: 
  Country: None (occurrence: None)
  Receive Date: 20060501
  Receipt Date: 20060125
  Transmission Date: 20061013
  Serious: Yes (Hospitalization)
  Sender: FDA-Public Use
  Company Number: US-AVENTIS-200610951US

PATIENT
  Sex: Female
  Weight: 98.17 kg

DRUGS (19)
  1. LANTUS [Suspect]
     Indication: DIABETES MELLITUS NON-INSULIN-DEPENDENT
     Dates: start: 20051227
  2. OPTICLIK (INSULIN INJECTION PEN) [Suspect]
     Indication: DIABETES MELLITUS NON-INSULIN-DEPENDENT
     Dates: start: 20051227
  3. LYRICA [Suspect]
     Indication: PAIN IN EXTREMITY
     Dosage: DOSE: UNK
  4. PREDNISONE TAB [Suspect]
     Dosage: DOSE: UNKNOWN
  5. FUROSEMIDE [Concomitant]
     Dosage: DOSE: UNK
  6. PLAVIX [Concomitant]
     Dosage: DOSE: UNK
  7. ECOTRIN [Concomitant]
  8. BISOPROLOL [Concomitant]
     Dosage: DOSE: UNK
  9. LEVOXYL [Concomitant]
     Dosage: DOSE: UNK
  10. PREVACID [Concomitant]
     Dosage: DOSE: UNK
  11. COZAAR [Concomitant]
     Dosage: DOSE: UNK
  12. CRESTOR [Concomitant]
     Indication: BLOOD CHOLESTEROL INCREASED
     Dosage: DOSE: UNK
  13. TRICOR [Concomitant]
     Indication: BLOOD CHOLESTEROL INCREASED
     Dosage: DOSE: UNK
  14. ZETIA                                   /USA/ [Concomitant]
     Indication: BLOOD CHOLESTEROL INCREASED
     Dosage: DOSE: UNK
  15. LEXAPRIL [Concomitant]
     Dosage: DOSE: UNK
  16. PROVIGIL [Concomitant]
     Dosage: DOSE: UNK
  17. DOXEPIN HCL [Concomitant]
     Indication: SOMNOLENCE
     Dosage: DOSE: UNK
  18. DARVOCET [Concomitant]
     Dosage: DOSE: Q4H
  19. ACTOS [Concomitant]

REACTIONS (6)
  - ASTHENIA [None]
  - BLOOD GLUCOSE FLUCTUATION [None]
  - CARDIAC FAILURE CONGESTIVE [None]
  - FATIGUE [None]
  - GENERALISED OEDEMA [None]
  - HYPERGLYCAEMIA [None]
